FAERS Safety Report 6359199-2 (Version None)
Quarter: 2009Q3

REPORT INFORMATION
  Report Type: 
  Country: None (occurrence: None)
  Receive Date: 20090917
  Receipt Date: 20071116
  Transmission Date: 20100115
  Serious: Yes (Other)
  Sender: FDA-Public Use
  Company Number: US-ASTRAZENECA-2007UW10953

PATIENT
  Age: 66 Year
  Sex: Female
  Weight: 83.9 kg

DRUGS (9)
  1. SEROQUEL [Suspect]
     Indication: SLEEP DISORDER
     Route: 048
     Dates: start: 20030102, end: 20060807
  2. DIOVAN HCT [Concomitant]
     Dosage: 80/12.5 MG ONCE A DAY
     Dates: start: 20040228
  3. AMARYL [Concomitant]
     Dosage: 4 MG TO 8 MG
     Route: 048
     Dates: start: 20040228
  4. LIPITOR [Concomitant]
     Dates: start: 20040228
  5. GLUCOPHAGE [Concomitant]
     Route: 048
     Dates: start: 20041127
  6. HISTUSSIN HC [Concomitant]
     Route: 048
     Dates: start: 20041127
  7. ZESTRIL [Concomitant]
     Route: 048
     Dates: start: 20041127
  8. PROTONIX [Concomitant]
     Dates: start: 20050313
  9. EFFEXOR XR [Concomitant]
     Dates: start: 20050313

REACTIONS (5)
  - DIABETES MELLITUS [None]
  - DIABETIC COMPLICATION [None]
  - DIABETIC VASCULAR DISORDER [None]
  - GLUCOSE TOLERANCE IMPAIRED [None]
  - TYPE 2 DIABETES MELLITUS [None]
